FAERS Safety Report 24269937 (Version 2)
Quarter: 2024Q3

REPORT INFORMATION
  Report Type: Report from Study
  Country: EG (occurrence: None)
  Receive Date: 20240830
  Receipt Date: 20240906
  Transmission Date: 20241017
  Serious: Yes (Life-Threatening)
  Sender: ASTRAZENECA
  Company Number: 2024A195814

PATIENT
  Age: 26800 Day
  Sex: Female

DRUGS (1)
  1. LYNPARZA [Suspect]
     Active Substance: OLAPARIB
     Indication: Ovarian cancer
     Route: 048

REACTIONS (5)
  - Internal haemorrhage [Recovered/Resolved]
  - Serum ferritin decreased [Unknown]
  - Hypotension [Unknown]
  - Fungal skin infection [Unknown]
  - Influenza [Unknown]

NARRATIVE: CASE EVENT DATE: 20240804
